FAERS Safety Report 17644637 (Version 1)
Quarter: 2020Q2

REPORT INFORMATION
  Report Type: Spontaneous
  Country: ES (occurrence: ES)
  Receive Date: 20200408
  Receipt Date: 20200408
  Transmission Date: 20200713
  Serious: Yes (Other)
  Sender: FDA-Public Use
  Company Number: ES-TEVA-2020-ES-1220562

PATIENT
  Age: 3 Year
  Sex: Female
  Weight: 14.65 kg

DRUGS (5)
  1. CICLOFOSFAMIDA (120A) [Suspect]
     Active Substance: CYCLOPHOSPHAMIDE
     Indication: ACUTE LYMPHOCYTIC LEUKAEMIA
     Dosage: CYCLOPHOSPHAMIDE IV (200 MG / M2) ON DAYS 2, 3 AND 4.
     Route: 042
     Dates: start: 20190824, end: 20190826
  2. ONCASPAR [Suspect]
     Active Substance: PEGASPARGASE
     Indication: ACUTE LYMPHOCYTIC LEUKAEMIA
     Dosage: PEGYLATED ASPARAGINASE IM (1000U / M2) ON DAY 7.
     Route: 030
     Dates: start: 20190829, end: 20190829
  3. CITARABINA (124A) [Suspect]
     Active Substance: CYTARABINE
     Indication: ACUTE LYMPHOCYTIC LEUKAEMIA
     Dosage: CYTARABINE IV (2 G / M2) ON DAY 5.
     Route: 042
     Dates: start: 20190827, end: 20190827
  4. VINCRISTINA (809A) [Suspect]
     Active Substance: VINCRISTINE SULFATE
     Indication: ACUTE LYMPHOCYTIC LEUKAEMIA
     Dosage: VINCRISTINE (1.5 MG / M2) ON DAYS 1 AND 6.
     Route: 042
     Dates: start: 20190823, end: 20190828
  5. METOTREXATO (418A) [Suspect]
     Active Substance: METHOTREXATE
     Indication: ACUTE LYMPHOCYTIC LEUKAEMIA
     Dosage: IV METHOTREXATE (5 GR / M2) ON DAY 1.
     Route: 042
     Dates: start: 20190823, end: 20190823

REACTIONS (1)
  - Hepatitis [Recovered/Resolved]

NARRATIVE: CASE EVENT DATE: 20190829
